FAERS Safety Report 5465940-3 (Version None)
Quarter: 2007Q3

REPORT INFORMATION
  Report Type: 
  Country: None (occurrence: None)
  Receive Date: 20070924
  Receipt Date: 20070919
  Transmission Date: 20080115
  Serious: Yes (Other)
  Sender: FDA-Public Use
  Company Number: US-SHR-US-2007-035560

PATIENT
  Sex: Female

DRUGS (3)
  1. CLIMARA [Suspect]
     Route: 062
     Dates: start: 20041201, end: 20061201
  2. CLIMARA [Suspect]
     Dosage: .1 MG, CONT
     Route: 062
     Dates: start: 20070101
  3. ACIPHEX [Concomitant]
     Dosage: 20 MG, 1X/DAY

REACTIONS (3)
  - APPLICATION SITE RASH [None]
  - BREAST MASS [None]
  - PHARMACEUTICAL PRODUCT COMPLAINT [None]
